FAERS Safety Report 8049218-X (Version None)
Quarter: 2012Q1

REPORT INFORMATION
  Report Type: 
  Country: None (occurrence: None)
  Receive Date: 20120117
  Receipt Date: 20120109
  Transmission Date: 20120608
  Serious: Yes (Death, Hospitalization, Other)
  Sender: FDA-Public Use
  Company Number: TW-CELGENEUS-153-CCAZA-11100654

PATIENT
  Sex: Male
  Weight: 75.9 kg

DRUGS (7)
  1. AZACITIDINE [Suspect]
     Indication: MYELODYSPLASTIC SYNDROME
     Dosage: 75 MILLIGRAM/SQ. METER
     Route: 058
     Dates: start: 20110725, end: 20110731
  2. DOXABEN [Concomitant]
     Indication: BENIGN PROSTATIC HYPERPLASIA
     Dosage: 4 MICROGRAM
     Route: 048
     Dates: start: 20111005, end: 20111006
  3. UROTROL [Concomitant]
     Indication: BENIGN PROSTATIC HYPERPLASIA
     Dosage: 15 MILLIGRAM
     Route: 048
     Dates: start: 20100101, end: 20111012
  4. AVODART [Concomitant]
     Indication: BENIGN PROSTATIC HYPERPLASIA
     Dosage: .5 MILLIGRAM
     Route: 048
     Dates: start: 20111005, end: 20111015
  5. ALLOPURINOL [Concomitant]
     Indication: GOUT
     Dosage: 100 MILLIGRAM
     Route: 048
     Dates: start: 20111005, end: 20111009
  6. UROTROL [Concomitant]
     Indication: URINARY INCONTINENCE
  7. AZACITIDINE [Suspect]
     Dosage: 75 MILLIGRAM/SQ. METER
     Route: 058
     Dates: start: 20110920, end: 20110926

REACTIONS (6)
  - RENAL FAILURE ACUTE [None]
  - PNEUMONIA [None]
  - PYREXIA [None]
  - HEPATIC FAILURE [None]
  - PANCREATITIS ACUTE [None]
  - FEBRILE NEUTROPENIA [None]
